FAERS Safety Report 8344152 (Version 3)
Quarter: 2013Q4

REPORT INFORMATION
  Report Type: Spontaneous
  Country: US (occurrence: US)
  Receive Date: 20120119
  Receipt Date: 20131101
  Transmission Date: 20140711
  Serious: Yes (Life-Threatening)
  Sender: FDA-Public Use
  Company Number: US-B.I. PHARMACEUTICALS,INC./RIDGEFIELD-2012-BP-00935BP

PATIENT
  Age: 77 Year
  Sex: Male
  Weight: 104.33 kg

DRUGS (14)
  1. PRADAXA [Suspect]
     Indication: CEREBROVASCULAR ACCIDENT PROPHYLAXIS
     Dosage: 300 MG
     Route: 048
     Dates: start: 20110912
  2. PRADAXA [Suspect]
     Indication: ATRIAL FIBRILLATION
     Dosage: 300 MG
     Route: 048
     Dates: start: 201111, end: 201203
  3. PRADAXA [Suspect]
     Dosage: 150 MG
     Route: 048
     Dates: start: 201204
  4. TECTERNER [Concomitant]
     Indication: HYPERTENSION
     Dosage: 300 MG
     Route: 048
  5. LOPRESSOR [Concomitant]
     Indication: HYPERTENSION
     Dosage: 50 MG
     Dates: start: 20110912
  6. LOPRESSOR [Concomitant]
     Indication: ATRIAL FIBRILLATION
  7. AMLODIPINE [Concomitant]
     Indication: HYPERTENSION
     Dosage: 10 MG
     Route: 048
  8. ALLOPURINOL [Concomitant]
     Indication: GOUT
     Route: 048
  9. NASONEX [Concomitant]
     Indication: SINUS CONGESTION
     Route: 045
  10. CEFUROXINE [Concomitant]
     Indication: SINUSITIS
     Dosage: 500 MG
     Route: 048
  11. NIFEDIPINE [Concomitant]
     Route: 048
  12. METOPROLOL [Concomitant]
     Route: 048
  13. TEKTURNA [Concomitant]
     Route: 048
  14. ASPIRIN [Concomitant]
     Dosage: 81 MG
     Route: 048

REACTIONS (10)
  - Cerebrovascular accident [Recovered/Resolved]
  - Scrotal haematocoele [Recovered/Resolved]
  - Blepharospasm [Not Recovered/Not Resolved]
  - Skin odour abnormal [Not Recovered/Not Resolved]
  - Scrotal haematocoele [Recovered/Resolved]
  - Haemorrhage [Recovered/Resolved]
  - Urine odour abnormal [Unknown]
  - Abnormal faeces [Unknown]
  - Dysgeusia [Unknown]
  - Parosmia [Unknown]
